FAERS Safety Report 18309744 (Version 1)
Quarter: 2020Q3

REPORT INFORMATION
  Report Type: Spontaneous
  Country: US (occurrence: US)
  Receive Date: 20200925
  Receipt Date: 20200925
  Transmission Date: 20201103
  Serious: No
  Sender: FDA-Public Use
  Company Number: US-AUROBINDO-AUR-APL-2020-026830

PATIENT
  Sex: Female

DRUGS (1)
  1. ALENDRONATE SODIUM TABLETS USP 70MG [Suspect]
     Active Substance: ALENDRONATE SODIUM
     Indication: BREAST CANCER
     Dosage: EVERY WEEK
     Route: 065
     Dates: start: 202001

REACTIONS (3)
  - Mouth ulceration [Not Recovered/Not Resolved]
  - Skin swelling [Not Recovered/Not Resolved]
  - Noninfective gingivitis [Not Recovered/Not Resolved]
